APPROVED DRUG PRODUCT: HYDROCORTISONE
Active Ingredient: HYDROCORTISONE
Strength: 1%
Dosage Form/Route: CREAM;TOPICAL
Application: A088027 | Product #001
Applicant: USL PHARMA INC
Approved: Sep 27, 1983 | RLD: No | RS: No | Type: DISCN